FAERS Safety Report 9984657 (Version 1)
Quarter: 2014Q1

REPORT INFORMATION
  Report Type: Spontaneous
  Country: US (occurrence: US)
  Receive Date: 20140307
  Receipt Date: 20140307
  Transmission Date: 20141002
  Serious: No
  Sender: FDA-Public Use
  Company Number: US-GLAXOSMITHKLINE-A1056914A

PATIENT
  Age: 75 Year
  Sex: Female

DRUGS (7)
  1. BREO ELLIPTA [Suspect]
     Indication: CHRONIC OBSTRUCTIVE PULMONARY DISEASE
     Dosage: 1PUFF PER DAY
     Route: 055
     Dates: start: 20140111, end: 20140117
  2. SPIRIVA [Concomitant]
  3. XOPENEX [Concomitant]
  4. ARCAPTA [Concomitant]
  5. LIPITOR [Concomitant]
  6. ACTONEL [Concomitant]
  7. ADVAIR [Concomitant]

REACTIONS (1)
  - Dyspnoea [Recovering/Resolving]
